FAERS Safety Report 22212393 (Version 3)
Quarter: 2023Q2

REPORT INFORMATION
  Report Type: Spontaneous
  Country: US (occurrence: US)
  Receive Date: 20230414
  Receipt Date: 20230529
  Transmission Date: 20230721
  Serious: Yes (Other)
  Sender: FDA-Public Use
  Company Number: US-PFIZER INC-2021223287

PATIENT
  Age: 70 Year
  Sex: Female

DRUGS (2)
  1. ESTRING [Suspect]
     Active Substance: ESTRADIOL
     Indication: Atrophic vulvovaginitis
     Dosage: 2 MG (EVERY 90 DAYS)
     Route: 067
     Dates: start: 202011
  2. ESTRING [Suspect]
     Active Substance: ESTRADIOL
     Indication: Urinary tract infection

REACTIONS (7)
  - Accident [Unknown]
  - Fall [Unknown]
  - Joint injury [Unknown]
  - Concussion [Not Recovered/Not Resolved]
  - Stress [Unknown]
  - Off label use [Unknown]
  - Intentional device use issue [Unknown]

NARRATIVE: CASE EVENT DATE: 20230101
